FAERS Safety Report 6386081-7 (Version None)
Quarter: 2009Q4

REPORT INFORMATION
  Report Type: 
  Country: None (occurrence: None)
  Receive Date: 20091002
  Receipt Date: 20081112
  Transmission Date: 20100525
  Serious: No
  Sender: FDA-Public Use
  Company Number: US-ASTRAZENECA-2008UW25284

PATIENT
  Age: 73 Year
  Sex: Female
  Weight: 70.3 kg

DRUGS (3)
  1. ARIMIDEX [Suspect]
     Indication: BREAST CANCER
     Route: 048
     Dates: start: 20071001, end: 20081001
  2. ATENOLOL [Concomitant]
  3. ZETIA [Concomitant]

REACTIONS (4)
  - ARTHRALGIA [None]
  - FEELING COLD [None]
  - OSTEOARTHRITIS [None]
  - PAIN IN EXTREMITY [None]
